FAERS Safety Report 18951906 (Version 1)
Quarter: 2021Q1

REPORT INFORMATION
  Report Type: Report from Study
  Country: US (occurrence: US)
  Receive Date: 20210301
  Receipt Date: 20210301
  Transmission Date: 20210420
  Serious: Yes (Death, Other)
  Sender: FDA-Public Use
  Company Number: US-SUN PHARMACEUTICAL INDUSTRIES LTD-2021R1-282796

PATIENT
  Age: 12 Month
  Sex: Male

DRUGS (1)
  1. OXYCODONE [Suspect]
     Active Substance: OXYCODONE
     Indication: PRODUCT USED FOR UNKNOWN INDICATION
     Dosage: UNK
     Route: 065

REACTIONS (6)
  - Coagulopathy [Unknown]
  - Acute lung injury [Unknown]
  - Depressed level of consciousness [Unknown]
  - Toxicity to various agents [Fatal]
  - Hypotension [Unknown]
  - Arrhythmia [Unknown]
